FAERS Safety Report 18264882 (Version 3)
Quarter: 2020Q4

REPORT INFORMATION
  Report Type: Spontaneous
  Country: US (occurrence: US)
  Receive Date: 20200914
  Receipt Date: 20201014
  Transmission Date: 20210113
  Serious: No
  Sender: FDA-Public Use
  Company Number: US-PFIZER INC-2020339052

PATIENT
  Age: 19 Year
  Sex: Female
  Weight: 78.5 kg

DRUGS (20)
  1. SODIUM CHLORIDE. [Suspect]
     Active Substance: SODIUM CHLORIDE
     Indication: CROHN^S DISEASE
     Dosage: 250ML MIXED WITH 400MG OF INFLECTRA FOR INFUSION ADMINISTERED INTRAVENOUSLY ON WEEKS 0, 2, AND 6
     Route: 042
     Dates: start: 20200630, end: 20200811
  2. BENADRYL ALLERGY [Concomitant]
     Active Substance: DIPHENHYDRAMINE HYDROCHLORIDE
     Dosage: 25 MG (PRIOR TO EVERY INFLECTRA INFUSION @ WEEK 0, 2, 6, 14 AND THEN EVERY 8 WEEKS THEREAFTER)
     Route: 048
  3. FAMOTIDINE. [Concomitant]
     Active Substance: FAMOTIDINE
     Indication: GASTROOESOPHAGEAL REFLUX DISEASE
     Dosage: 40 MG, AS NEEDED (AT BEDTIME (2100))
     Route: 048
  4. HYDROCORTISONE. [Concomitant]
     Active Substance: HYDROCORTISONE
     Indication: CROHN^S DISEASE
     Dosage: 2.5 % TOPICAL CREAM WITH PERINEAL APPLICATOR, 1 APPLICATION RECTALLY TWICE DAILY (0900, 2100)
     Route: 054
  5. MESALAMINE. [Concomitant]
     Active Substance: MESALAMINE
     Indication: CROHN^S DISEASE
  6. OMEPRAZOLE. [Concomitant]
     Active Substance: OMEPRAZOLE
     Dosage: 20 MG, DAILYAT 0900
  7. PENTASA [Concomitant]
     Active Substance: MESALAMINE
     Indication: CROHN^S DISEASE
     Dosage: 1000 MG, 3X/DAY (0900, 1500, 2100)
     Route: 048
  8. PENTASA [Concomitant]
     Active Substance: MESALAMINE
     Indication: RECTAL HAEMORRHAGE
  9. FAMOTIDINE. [Concomitant]
     Active Substance: FAMOTIDINE
     Indication: NAUSEA
  10. PREDNISONE. [Concomitant]
     Active Substance: PREDNISONE
     Indication: CROHN^S DISEASE
     Dosage: 5 MG ORALLY AS DIRECTED, START AT 40MG, TAKE 8 TABLETS X 14 DAYS + DECREASE BY 1 TABLET EVERY 14 DAY
     Route: 048
  11. INFLECTRA [Suspect]
     Active Substance: INFLIXIMAB-DYYB
     Indication: CROHN^S DISEASE
     Dosage: 400MG MIXED WITH 250ML OF SODIUM CHLORIDE ADMINISTERED INTRAVENOUSLY ON WEEKS 0, 2, AND 6
     Route: 042
     Dates: start: 20200630, end: 20200811
  12. OMEGA 3 FISH OILS [Concomitant]
     Active Substance: OMEGA-3 FATTY ACIDS
     Dosage: 1000 MG, DAILY
     Route: 048
  13. MESALAMINE. [Concomitant]
     Active Substance: MESALAMINE
     Indication: INFLAMMATORY BOWEL DISEASE
     Dosage: 1 G, RECTALLY DAILY @ 0900 AS NEEDED
     Route: 054
  14. XYZAL [Concomitant]
     Active Substance: LEVOCETIRIZINE DIHYDROCHLORIDE
     Dosage: 5 MG, DAILY AT 0900
     Route: 048
  15. HYDROCORTISONE. [Concomitant]
     Active Substance: HYDROCORTISONE
     Indication: RECTAL HAEMORRHAGE
  16. LACTOBACILLUS [Concomitant]
     Active Substance: LACTOBACILLUS ACIDOPHILUS
     Dosage: 3,000 MMU CELLS DAILY @ 0900
     Route: 048
  17. NORGESTIMATE / ETHINYL ESTRADIOL [Concomitant]
     Dosage: NORGESTIMATE 0.18 MG/0.215 MG/0.25 MG ETHINYL ESTRADIOL 25 MCG TABLET, DAILY AT 0900
     Route: 048
  18. REMICADE [Concomitant]
     Active Substance: INFLIXIMAB
     Indication: CROHN^S DISEASE
     Dosage: 5 MG/KG (ADMINISTER FOR WEEK 14 (10JUN2020))
     Dates: start: 20200610
  19. TYLENOL EXTRA STRENGTH [Concomitant]
     Active Substance: ACETAMINOPHEN
     Indication: CROHN^S DISEASE
     Dosage: 500 MG (PRIOR TO EVERY INFLECTRA INFUSION @ WEEK 0, 2, 6, 14 AND THEN EVERY 8 WEEKS THEREAFTER)
     Route: 048
  20. VITAMIN C [Concomitant]
     Active Substance: ASCORBIC ACID
     Dosage: 100 MG, DAILY AT 0900
     Route: 048

REACTIONS (7)
  - Hypoaesthesia [Unknown]
  - Infusion related reaction [Unknown]
  - Overdose [Unknown]
  - Muscular weakness [Unknown]
  - Therapy change [Not Recovered/Not Resolved]
  - Decreased appetite [Unknown]
  - Back pain [Unknown]

NARRATIVE: CASE EVENT DATE: 20200630
